FAERS Safety Report 7576371-4 (Version None)
Quarter: 2011Q2

REPORT INFORMATION
  Report Type: 
  Country: None (occurrence: None)
  Receive Date: 20110628
  Receipt Date: 20110107
  Transmission Date: 20111010
  Serious: Yes (Other)
  Sender: FDA-Public Use
  Company Number: US-BAYER-201039445NA

PATIENT
  Age: 18 Year
  Sex: Female
  Weight: 86.168 kg

DRUGS (5)
  1. YASMIN [Suspect]
     Indication: PREMENSTRUAL SYNDROME
     Dosage: UNK
     Dates: start: 20061101, end: 20080701
  2. DROSPIRENONE AND ETHINYL ESTRADIOL [Suspect]
     Indication: PREMENSTRUAL SYNDROME
     Dosage: UNK
     Dates: start: 20080701, end: 20090801
  3. TYLENOL-500 [Concomitant]
  4. YASMIN [Suspect]
     Indication: MENSTRUAL DISORDER
     Dates: start: 20061101, end: 20090801
  5. DROSPIRENONE AND ETHINYL ESTRADIOL [Suspect]
     Indication: MENSTRUAL DISORDER
     Dates: start: 20061101, end: 20090801

REACTIONS (6)
  - HYDROCHOLECYSTIS [None]
  - PROCEDURAL PAIN [None]
  - ABDOMINAL PAIN UPPER [None]
  - GALLBLADDER DISORDER [None]
  - CHOLECYSTITIS ACUTE [None]
  - DYSPEPSIA [None]
